FAERS Safety Report 15547765 (Version 1)
Quarter: 2018Q4

REPORT INFORMATION
  Report Type: Spontaneous
  Country: US (occurrence: US)
  Receive Date: 20181024
  Receipt Date: 20181024
  Transmission Date: 20190205
  Serious: Yes (Other)
  Sender: FDA-Public Use
  Company Number: None

PATIENT
  Age: 69 Year
  Sex: Female
  Weight: 85.5 kg

DRUGS (3)
  1. MULTIVITAMIN W/O IRON [Concomitant]
  2. CIPROFLOXACN 500MG TAB [Suspect]
     Active Substance: CIPROFLOXACIN
     Indication: URINARY TRACT INFECTION
     Dosage: ?          QUANTITY:1 TABLET(S);?
     Route: 048
     Dates: start: 20180906, end: 20180911
  3. LEVOTHYROXIN [Concomitant]
     Active Substance: LEVOTHYROXINE

REACTIONS (3)
  - Paraesthesia [None]
  - Ileus paralytic [None]
  - Neuropathy peripheral [None]

NARRATIVE: CASE EVENT DATE: 20181005
